FAERS Safety Report 7685838-X (Version None)
Quarter: 2011Q3

REPORT INFORMATION
  Report Type: 
  Country: None (occurrence: None)
  Receive Date: 20110816
  Receipt Date: 20110809
  Transmission Date: 20111222
  Serious: Yes (Other)
  Sender: FDA-Public Use
  Company Number: US-PFIZER INC-2011142678

PATIENT
  Sex: Female

DRUGS (6)
  1. SOMAVERT [Suspect]
     Indication: ACROMEGALY
     Dosage: 10 MG, 1X/DAY
     Route: 058
     Dates: start: 20110207, end: 20110422
  2. JANUMET [Concomitant]
     Indication: DIABETES MELLITUS
     Dosage: 50/1000 MG
     Dates: start: 20090101
  3. UROCIT-K [Concomitant]
     Dosage: UNK
  4. LOSARTAN [Concomitant]
     Indication: HYPERTENSION
     Dosage: 50 MG, UNK
     Dates: start: 20080101
  5. SYNTHROID [Concomitant]
     Dosage: 75 MG, 1X/DAY
  6. HYDROCORT [Concomitant]
     Indication: HYPOPITUITARISM
     Dosage: 30 MG, 1X/DAY
     Dates: start: 20080101

REACTIONS (7)
  - FATIGUE [None]
  - CHEST PAIN [None]
  - NAUSEA [None]
  - HEPATITIS [None]
  - DECREASED APPETITE [None]
  - VOMITING [None]
  - HEPATIC ENZYME INCREASED [None]
